FAERS Safety Report 19297276 (Version 3)
Quarter: 2021Q4

REPORT INFORMATION
  Report Type: Other
  Country: CA (occurrence: CA)
  Receive Date: 20210524
  Receipt Date: 20211008
  Transmission Date: 20220303
  Serious: Yes (Death, Hospitalization, Other)
  Sender: FDA-Public Use
  Company Number: CA-TOLMAR, INC.-21CA027372

PATIENT
  Age: 92 Year
  Sex: Male

DRUGS (3)
  1. ELIGARD [Suspect]
     Active Substance: LEUPROLIDE ACETATE
     Indication: Prostate cancer
     Dosage: 45 MG, Q 6 MONTH
     Route: 058
     Dates: start: 20201208
  2. ELIGARD [Suspect]
     Active Substance: LEUPROLIDE ACETATE
     Dosage: 45 MG, Q 6 MONTH
     Route: 058
     Dates: start: 20060801
  3. ELIGARD [Suspect]
     Active Substance: LEUPROLIDE ACETATE
     Dosage: 45 MG, Q 6 MONTH
     Route: 058
     Dates: start: 20210525

REACTIONS (5)
  - Cardiac disorder [Unknown]
  - Pulmonary hypertension [Fatal]
  - Haemorrhage urinary tract [Unknown]
  - Dementia Alzheimer^s type [Unknown]
  - Prostate cancer [Fatal]

NARRATIVE: CASE EVENT DATE: 20210101
